FAERS Safety Report 7818030-6 (Version None)
Quarter: 2011Q4

REPORT INFORMATION
  Report Type: 
  Country: None (occurrence: None)
  Receive Date: 20111017
  Receipt Date: 20111013
  Transmission Date: 20120403
  Serious: Yes (Other)
  Sender: FDA-Public Use
  Company Number: US-BRISTOL-MYERS SQUIBB COMPANY-16159147

PATIENT
  Sex: Male

DRUGS (1)
  1. METFORMIN HCL [Suspect]

REACTIONS (4)
  - PNEUMONIA ASPIRATION [None]
  - PANCREATITIS [None]
  - GASTROINTESTINAL HAEMORRHAGE [None]
  - RENAL FAILURE ACUTE [None]
